FAERS Safety Report 4429738-7 (Version None)
Quarter: 2004Q3

REPORT INFORMATION
  Report Type: 
  Country: None (occurrence: None)
  Receive Date: 20040820
  Receipt Date: 20040810
  Transmission Date: 20050211
  Serious: Yes (Death)
  Sender: FDA-Public Use
  Company Number: US-JNJFOC-20040704817

PATIENT
  Sex: Female
  Weight: 66.41 kg

DRUGS (32)
  1. REMICADE [Suspect]
     Route: 042
  2. REMICADE [Suspect]
     Indication: RHEUMATOID ARTHRITIS
     Route: 042
  3. LOPRESSOR [Concomitant]
  4. PREDNISONE [Concomitant]
  5. TYLENOL [Concomitant]
  6. ZOLOFT [Concomitant]
  7. TOPROL-XL [Concomitant]
  8. THEOPHYLLINE-SR [Concomitant]
  9. PEPCID [Concomitant]
  10. IMDUR [Concomitant]
  11. FOSAMAX [Concomitant]
  12. FOLIC ACID [Concomitant]
  13. FLONASE [Concomitant]
  14. ACLOVATE [Concomitant]
  15. ASPIRIN [Concomitant]
  16. METHOTREXATE [Concomitant]
  17. CELEBREX [Concomitant]
  18. OSCAL [Concomitant]
  19. M.V.I. [Concomitant]
  20. M.V.I. [Concomitant]
  21. M.V.I. [Concomitant]
  22. M.V.I. [Concomitant]
  23. M.V.I. [Concomitant]
  24. M.V.I. [Concomitant]
  25. M.V.I. [Concomitant]
  26. M.V.I. [Concomitant]
  27. ELAVIL [Concomitant]
  28. DIOVAN [Concomitant]
  29. IMODIUM [Concomitant]
  30. ATIVAN [Concomitant]
  31. TEARS [Concomitant]
  32. TEARS [Concomitant]

REACTIONS (3)
  - MASS [None]
  - NECROSIS [None]
  - RESPIRATORY FAILURE [None]
